FAERS Safety Report 17925751 (Version 1)
Quarter: 2020Q2

REPORT INFORMATION
  Report Type: Spontaneous
  Country: US (occurrence: US)
  Receive Date: 20200622
  Receipt Date: 20200622
  Transmission Date: 20200714
  Serious: No
  Sender: FDA-Public Use
  Company Number: US-TEVA-2020-US-1791632

PATIENT
  Age: 49 Year
  Sex: Female

DRUGS (3)
  1. PROAIR RESPICLICK [Suspect]
     Active Substance: ALBUTEROL SULFATE
     Indication: VIRAL INFECTION
  2. PROAIR RESPICLICK [Suspect]
     Active Substance: ALBUTEROL SULFATE
     Indication: DYSPNOEA
  3. PROAIR RESPICLICK [Suspect]
     Active Substance: ALBUTEROL SULFATE
     Indication: RESPIRATORY DISORDER
     Route: 065

REACTIONS (7)
  - Nausea [Unknown]
  - Product taste abnormal [Unknown]
  - Dry mouth [Unknown]
  - Device delivery system issue [Unknown]
  - Feeding disorder [Unknown]
  - Ill-defined disorder [Unknown]
  - Taste disorder [Unknown]

NARRATIVE: CASE EVENT DATE: 20200423
